FAERS Safety Report 13205730 (Version 1)
Quarter: 2017Q1

REPORT INFORMATION
  Report Type: Spontaneous
  Country: US (occurrence: US)
  Receive Date: 20170208
  Receipt Date: 20170208
  Transmission Date: 20170428
  Serious: Yes (Other)
  Sender: FDA-Public Use
  Company Number: None

PATIENT
  Age: 39 Year
  Sex: Male
  Weight: 80 kg

DRUGS (1)
  1. TAMSULOSINA [Suspect]
     Active Substance: TAMSULOSIN HYDROCHLORIDE
     Indication: MICTURITION URGENCY
     Route: 002

REACTIONS (3)
  - Musculoskeletal discomfort [None]
  - Throat irritation [None]
  - Nasal obstruction [None]

NARRATIVE: CASE EVENT DATE: 20170208
